FAERS Safety Report 16299756 (Version 3)
Quarter: 2020Q2

REPORT INFORMATION
  Report Type: Spontaneous
  Country: AU (occurrence: AU)
  Receive Date: 20190510
  Receipt Date: 20200511
  Transmission Date: 20200713
  Serious: Yes (Other)
  Sender: FDA-Public Use
  Company Number: AU-BRISTOL-MYERS SQUIBB COMPANY-BMS-2019-045450

PATIENT
  Age: 65 Year
  Sex: Female

DRUGS (1)
  1. APIXABAN [Suspect]
     Active Substance: APIXABAN
     Indication: ANTIPHOSPHOLIPID SYNDROME
     Dosage: UNK
     Route: 065
     Dates: start: 2017

REACTIONS (3)
  - Intentional product use issue [Unknown]
  - Embolic cerebral infarction [Unknown]
  - Embolism [Unknown]
